FAERS Safety Report 5392736-3 (Version None)
Quarter: 2007Q3

REPORT INFORMATION
  Report Type: 
  Country: None (occurrence: None)
  Receive Date: 20070720
  Receipt Date: 20070710
  Transmission Date: 20080115
  Serious: Yes (Hospitalization)
  Sender: FDA-Public Use
  Company Number: KR-PFIZER INC-2006130145

PATIENT
  Sex: Male
  Weight: 76 kg

DRUGS (2)
  1. SU-011,248 [Suspect]
     Indication: GASTROINTESTINAL STROMAL TUMOUR
     Route: 048
  2. CODEINE SUL TAB [Concomitant]
     Route: 048
     Dates: start: 20060912, end: 20061009

REACTIONS (2)
  - LIVER ABSCESS [None]
  - NEUTROPENIA [None]
